FAERS Safety Report 7618766-6 (Version None)
Quarter: 2011Q3

REPORT INFORMATION
  Report Type: 
  Country: None (occurrence: None)
  Receive Date: 20110718
  Receipt Date: 20110712
  Transmission Date: 20111222
  Serious: Yes (Other)
  Sender: FDA-Public Use
  Company Number: US-BAYER-2011-061332

PATIENT
  Age: 44 Year
  Sex: Male
  Weight: 67.574 kg

DRUGS (1)
  1. ONE-A-DAY MEN'S HEALTH [Suspect]
     Dosage: 1 DF, QD, BOTTLE COUNT 250S
     Route: 048

REACTIONS (1)
  - CHOKING [None]
